FAERS Safety Report 18910956 (Version 6)
Quarter: 2021Q2

REPORT INFORMATION
  Report Type: Report from Study
  Country: None (occurrence: US)
  Receive Date: 20210218
  Receipt Date: 20210614
  Transmission Date: 20210717
  Serious: Yes (Other)
  Sender: FDA-Public Use
  Company Number: US-ABBVIE-21K-163-3746774-00

PATIENT
  Age: 56 Year
  Sex: Male
  Weight: 97.16 kg

DRUGS (6)
  1. HUMIRA [Suspect]
     Active Substance: ADALIMUMAB
     Indication: COLITIS ULCERATIVE
     Dosage: CITRATE FREE
     Route: 058
     Dates: start: 2018
  2. ELIQUIS [Concomitant]
     Active Substance: APIXABAN
     Indication: BLOOD CHOLESTEROL INCREASED
  3. VICTOZA [Concomitant]
     Active Substance: LIRAGLUTIDE
     Indication: DIABETES MELLITUS
  4. MODERNA COVID?19 VACCINE [Concomitant]
     Active Substance: CX-024414
     Indication: COVID-19 IMMUNISATION
     Route: 030
     Dates: start: 202103, end: 202103
  5. LISINOPRIL. [Concomitant]
     Active Substance: LISINOPRIL
     Indication: DIABETES MELLITUS
  6. HUMIRA [Suspect]
     Active Substance: ADALIMUMAB
     Dosage: CITRATE FREE
     Route: 058
     Dates: end: 20210427

REACTIONS (19)
  - Venous occlusion [Recovering/Resolving]
  - Muscle strain [Recovered/Resolved]
  - Muscle rupture [Recovered/Resolved]
  - Weight increased [Recovering/Resolving]
  - Illness [Recovered/Resolved]
  - Blood glucose increased [Recovering/Resolving]
  - Blood cholesterol increased [Unknown]
  - Pain [Not Recovered/Not Resolved]
  - COVID-19 [Recovering/Resolving]
  - Electric shock sensation [Recovering/Resolving]
  - Accident [Recovered/Resolved]
  - Diabetes mellitus [Recovering/Resolving]
  - Muscle rupture [Recovered/Resolved]
  - Joint swelling [Recovered/Resolved]
  - Neuropathy peripheral [Unknown]
  - Rash [Recovered/Resolved]
  - Injection site reaction [Not Recovered/Not Resolved]
  - Sinusitis [Unknown]
  - Accident at work [Recovering/Resolving]

NARRATIVE: CASE EVENT DATE: 201806
